FAERS Safety Report 6250619-0 (Version None)
Quarter: 2009Q2

REPORT INFORMATION
  Report Type: 
  Country: None (occurrence: None)
  Receive Date: 20090630
  Receipt Date: 20090622
  Transmission Date: 20091009
  Serious: Yes (Hospitalization)
  Sender: FDA-Public Use
  Company Number: HQWYE587628JUL05

PATIENT
  Age: 49 Year
  Sex: Male

DRUGS (9)
  1. SIROLIMUS [Suspect]
     Indication: PROPHYLAXIS AGAINST TRANSPLANT REJECTION
     Route: 048
     Dates: start: 20040915, end: 20040918
  2. MYCOPHENOLATE MOFETIL [Suspect]
     Indication: PROPHYLAXIS AGAINST TRANSPLANT REJECTION
     Route: 048
     Dates: start: 20040915, end: 20040917
  3. MYCOPHENOLATE MOFETIL [Suspect]
     Route: 048
     Dates: start: 20070427
  4. AMPHOTERICIN B [Concomitant]
     Dosage: UNKNOWN
     Dates: start: 20040916, end: 20041019
  5. METOPROLOL SUCCINATE [Concomitant]
     Dosage: DOSE/FREQUENCY UNKNOWN
     Dates: start: 20040916
  6. AMBROXOL [Concomitant]
     Dosage: UNKNOWN DOSE/FREQUENCY
     Dates: start: 20040916, end: 20040921
  7. DACLIZUMAB [Suspect]
     Indication: PROPHYLAXIS AGAINST TRANSPLANT REJECTION
     Dosage: 165 MG, SINGLE DOSE
     Route: 042
     Dates: start: 20040915, end: 20040915
  8. DACLIZUMAB [Suspect]
     Route: 042
     Dates: start: 20040929
  9. METHYLPREDNISOLONE [Suspect]
     Indication: PROPHYLAXIS AGAINST TRANSPLANT REJECTION
     Dosage: 250 MG SINGLE DOSE
     Route: 042
     Dates: start: 20040915

REACTIONS (1)
  - PANCREATITIS ACUTE [None]
